FAERS Safety Report 13579872 (Version 2)
Quarter: 2017Q3

REPORT INFORMATION
  Report Type: Spontaneous
  Country: BR (occurrence: BR)
  Receive Date: 20170525
  Receipt Date: 20170712
  Transmission Date: 20171127
  Serious: Yes (Other)
  Sender: FDA-Public Use
  Company Number: BR-AMGEN-BRASP2017079458

PATIENT
  Age: 36 Year
  Sex: Male

DRUGS (1)
  1. ENBREL [Suspect]
     Active Substance: ETANERCEPT
     Indication: ANKYLOSING SPONDYLITIS
     Dosage: 1 APPLICATION OF 50MG PER WEEK
     Route: 065
     Dates: start: 201701

REACTIONS (6)
  - Injection site discolouration [Recovered/Resolved]
  - Hypersensitivity [Recovered/Resolved]
  - Injection site hypersensitivity [Recovered/Resolved]
  - Nodule [Recovered/Resolved]
  - Lymphadenitis bacterial [Recovered/Resolved]
  - Injection site pain [Recovered/Resolved]

NARRATIVE: CASE EVENT DATE: 2017
